FAERS Safety Report 20713740 (Version 1)
Quarter: 2022Q2

REPORT INFORMATION
  Report Type: Spontaneous
  Country: US (occurrence: None)
  Receive Date: 20220414
  Receipt Date: 20220414
  Transmission Date: 20220721
  Serious: Yes (Disabling)
  Sender: FDA-Public Use
  Company Number: None

PATIENT
  Age: 27 Year
  Sex: Female
  Weight: 47.25 kg

DRUGS (1)
  1. CIPROFLOXACIN [Suspect]
     Active Substance: CIPROFLOXACIN
     Indication: Diarrhoea
     Dates: start: 20211202, end: 20220109

REACTIONS (3)
  - Impaired gastric emptying [None]
  - Clostridium difficile infection [None]
  - Impaired quality of life [None]

NARRATIVE: CASE EVENT DATE: 20211202
